FAERS Safety Report 4410929-6 (Version None)
Quarter: 2004Q3

REPORT INFORMATION
  Report Type: 
  Country: None (occurrence: None)
  Receive Date: 20040726
  Receipt Date: 20040712
  Transmission Date: 20050211
  Serious: Yes (Hospitalization, Other)
  Sender: FDA-Public Use
  Company Number: HQWYE453815JUN04

PATIENT
  Age: 44 Year
  Sex: Female
  Weight: 67.9 kg

DRUGS (20)
  1. RAPAMUNE [Suspect]
     Indication: PROPHYLAXIS AGAINST TRANSPLANT REJECTION
     Dosage: SEE IMAGE, ORAL
     Route: 048
     Dates: end: 20040623
  2. RAPAMUNE [Suspect]
     Indication: PROPHYLAXIS AGAINST TRANSPLANT REJECTION
     Dosage: SEE IMAGE, ORAL
     Route: 048
     Dates: start: 20030624
  3. RAPAMUNE [Suspect]
     Indication: PROPHYLAXIS AGAINST TRANSPLANT REJECTION
     Dosage: SEE IMAGE, ORAL
     Route: 048
     Dates: start: 20040323
  4. NEORAL [Suspect]
     Indication: PROPHYLAXIS AGAINST TRANSPLANT REJECTION
     Dosage: 150 MG 1X PER 1 DAY),ORAL
     Route: 048
  5. PREDNISONE [Concomitant]
  6. VALCYTE [Concomitant]
  7. DAPSONE [Concomitant]
  8. NYSTATIN [Concomitant]
  9. MULTIVIT (VITAMINS NOS) [Concomitant]
  10. FOLIC ACID [Concomitant]
  11. PROTONIX [Concomitant]
  12. LOPRESSOR [Concomitant]
  13. CATAPRES [Concomitant]
  14. PROCARDIA [Concomitant]
  15. FUROSEMIDE [Concomitant]
  16. PROZAC [Concomitant]
  17. EPOGEN [Concomitant]
  18. PREMARIN [Concomitant]
  19. ATENOLOL [Concomitant]
  20. NORVASC [Concomitant]

REACTIONS (20)
  - ANAEMIA [None]
  - ANGIOPATHY [None]
  - BILIARY NEOPLASM [None]
  - BIOPSY LIVER ABNORMAL [None]
  - BLADDER DISORDER [None]
  - CHOLECYSTITIS [None]
  - DIARRHOEA [None]
  - EFFUSION [None]
  - GALLBLADDER OEDEMA [None]
  - HAEMATURIA [None]
  - ILEUS [None]
  - KIDNEY TRANSPLANT REJECTION [None]
  - LIVER FUNCTION TEST ABNORMAL [None]
  - POST PROCEDURAL HAEMORRHAGE [None]
  - PULMONARY OEDEMA [None]
  - RENAL FAILURE CHRONIC [None]
  - RENAL TUBULAR NECROSIS [None]
  - THROMBOCYTOPENIA [None]
  - THROMBOSIS [None]
  - URINARY TRACT INFECTION ENTEROCOCCAL [None]
